FAERS Safety Report 9796827 (Version 3)
Quarter: 2014Q1

REPORT INFORMATION
  Report Type: Report from Study
  Country: JP (occurrence: JP)
  Receive Date: 20140103
  Receipt Date: 20140107
  Transmission Date: 20141002
  Serious: Yes (Death, Hospitalization)
  Sender: FDA-Public Use
  Company Number: JP-PFIZER INC-2013350610

PATIENT
  Age: 80 Year
  Sex: Female
  Weight: 45.3 kg

DRUGS (15)
  1. FOSPHENYTOIN SODIUM [Suspect]
     Indication: SUBDURAL HAEMATOMA
     Dosage: 750 MG, UNK
     Dates: start: 20131126
  2. FOSPHENYTOIN SODIUM [Suspect]
     Indication: STATUS EPILEPTICUS
     Dosage: 375 MG, UNK
     Dates: start: 20131127
  3. PERDIPINE [Concomitant]
     Indication: HYPERTENSION
     Dosage: UNK
     Route: 042
     Dates: start: 20131127, end: 20131128
  4. CEFAMEZIN [Concomitant]
     Indication: POST PROCEDURAL INFECTION
     Dosage: 2 G, UNK
     Route: 042
     Dates: start: 20131125
  5. HORIZON [Concomitant]
     Indication: CONVULSION PROPHYLAXIS
     Dosage: 10 MG, UNK
     Route: 042
     Dates: start: 20131126
  6. LOXOPROFEN [Concomitant]
     Indication: ANALGESIC THERAPY
     Dosage: 180 MG, UNK
     Route: 048
     Dates: start: 20131125, end: 20131201
  7. NEXIUM [Concomitant]
     Dosage: 1 CAPSULE
     Route: 048
     Dates: start: 20131125, end: 20131201
  8. THYRADIN - S [Concomitant]
     Indication: HYPOPITUITARISM
     Dosage: 50 MG, UNK
     Route: 048
     Dates: start: 20131125, end: 20131201
  9. CORTRIL [Concomitant]
     Indication: HYPOPITUITARISM
     Dosage: 5 MG, UNK
     Route: 048
     Dates: start: 20131125, end: 20131201
  10. PAXIL [Concomitant]
     Indication: DEPRESSION
     Dosage: 20 MG, UNK
     Route: 048
     Dates: start: 20131125, end: 20131130
  11. E KEPPRA [Concomitant]
     Indication: STATUS EPILEPTICUS
     Dosage: 2000 MG, UNK
     Route: 048
     Dates: start: 20131126, end: 20131201
  12. TEGRETOL [Concomitant]
     Indication: STATUS EPILEPTICUS
     Dosage: 200 MG, UNK
     Route: 048
     Dates: start: 20131126, end: 20131129
  13. FEBURIC [Concomitant]
     Dosage: 10 MG, UNK
     Route: 048
     Dates: start: 20131125
  14. BEZATOL [Concomitant]
     Indication: HYPERLIPIDAEMIA
     Dosage: 200 MG, UNK
     Route: 048
     Dates: start: 20131125
  15. BFLUID [Concomitant]
     Indication: NUTRITIONAL SUPPLEMENTATION
     Dosage: 1000 MG, UNK
     Route: 042
     Dates: start: 20131126, end: 20131127

REACTIONS (2)
  - Hepatitis fulminant [Fatal]
  - Subdural haematoma [Unknown]
